FAERS Safety Report 11224618 (Version 1)
Quarter: 2015Q2

REPORT INFORMATION
  Report Type: Spontaneous
  Country: RU (occurrence: None)
  Receive Date: 20150625
  Receipt Date: 20150625
  Transmission Date: 20150821
  Serious: Yes (Other)
  Sender: FDA-Public Use
  Company Number: RU2015GSK086269

PATIENT

DRUGS (8)
  1. PYRAZINAMIDE (PYRAZINAMIDE) [Suspect]
     Active Substance: PYRAZINAMIDE
     Indication: TUBERCULOSIS
     Dates: start: 201506
  2. KIVEXA [Suspect]
     Active Substance: ABACAVIR SULFATE\LAMIVUDINE
     Indication: HIV INFECTION
     Dates: start: 201502
  3. STOCRIN (EFAVIRENZ) [Suspect]
     Active Substance: EFAVIRENZ
     Indication: HIV INFECTION
     Dates: start: 20150602
  4. ISONIAZID (ISONIAZID) [Suspect]
     Active Substance: ISONIAZID
     Indication: TUBERCULOSIS
  5. RIFAMPICIN (RIFAMPICIN) [Suspect]
     Active Substance: RIFAMPIN
     Indication: TUBERCULOSIS
     Dates: start: 201506
  6. ETHAMBUTOL [Suspect]
     Active Substance: ETHAMBUTOL HYDROCHLORIDE
     Indication: TUBERCULOSIS
     Dates: start: 201506
  7. KALETRA [Suspect]
     Active Substance: LOPINAVIR\RITONAVIR
     Indication: HIV INFECTION
     Dates: start: 201502, end: 20150601
  8. ACYCLOVIR (ACYCLOVIR) [Suspect]
     Active Substance: ACYCLOVIR
     Indication: ANTIVIRAL PROPHYLAXIS
     Dates: start: 201506

REACTIONS (7)
  - Faeces discoloured [None]
  - Pyrexia [None]
  - Pulmonary tuberculosis [None]
  - Rash [None]
  - Pleurisy [None]
  - Chest pain [None]
  - Chromaturia [None]

NARRATIVE: CASE EVENT DATE: 20150614
